FAERS Safety Report 13025242 (Version 2)
Quarter: 2017Q4

REPORT INFORMATION
  Report Type: Spontaneous
  Country: US (occurrence: US)
  Receive Date: 20161214
  Receipt Date: 20171007
  Transmission Date: 20180320
  Serious: No
  Sender: FDA-Public Use
  Company Number: PHEH2016US032381

PATIENT
  Age: 71 Year
  Sex: Female

DRUGS (2)
  1. TYKERB [Suspect]
     Active Substance: LAPATINIB DITOSYLATE
     Indication: METASTASES TO LUNG
  2. TYKERB [Suspect]
     Active Substance: LAPATINIB DITOSYLATE
     Indication: BREAST CANCER
     Dosage: 1250 MG, QD
     Route: 048
     Dates: start: 20161118

REACTIONS (5)
  - Fatigue [Unknown]
  - Neuralgia [Unknown]
  - Nausea [Unknown]
  - Diarrhoea [Unknown]
  - Chapped lips [Unknown]

NARRATIVE: CASE EVENT DATE: 20161119
